FAERS Safety Report 9866004 (Version 2)
Quarter: 2014Q1

REPORT INFORMATION
  Report Type: Spontaneous
  Country: US (occurrence: US)
  Receive Date: 20140203
  Receipt Date: 20140203
  Transmission Date: 20141002
  Serious: No
  Sender: FDA-Public Use
  Company Number: US-ALLERGAN-1314675US

PATIENT
  Age: 55 Year
  Sex: Female

DRUGS (9)
  1. RESTASIS [Suspect]
     Indication: DRY EYE
     Dosage: 2 GTT, BID
     Route: 047
     Dates: start: 201306
  2. SYSTANE ULTRA [Concomitant]
     Indication: DRY EYE
     Dosage: UNK
     Route: 047
  3. EYE DROPS NOS [Concomitant]
     Indication: EYE DISORDER
     Dosage: UNK, PRN
     Route: 047
  4. EYE DROPS NOS [Concomitant]
     Indication: EYE DISORDER
  5. EYE DROPS NOS [Concomitant]
     Indication: EYE PRURITUS
  6. UREA CREAM NOS [Concomitant]
     Indication: NAIL DISORDER
     Dosage: UNK
  7. ALLERGY SHOTS NOS [Concomitant]
     Indication: PRODUCT USED FOR UNKNOWN INDICATION
     Dosage: UNK
  8. NIZORAL SHAMPOO [Concomitant]
     Indication: PRURITUS
     Dosage: UNK
     Route: 061
  9. NIZORAL SHAMPOO [Concomitant]
     Indication: SEBORRHOEIC DERMATITIS

REACTIONS (6)
  - Brain neoplasm [Unknown]
  - Eyelids pruritus [Recovered/Resolved]
  - Therapeutic response unexpected [Unknown]
  - Inappropriate schedule of drug administration [Unknown]
  - Eye pruritus [Not Recovered/Not Resolved]
  - Eye pruritus [Not Recovered/Not Resolved]
